FAERS Safety Report 5591311-5 (Version None)
Quarter: 2008Q1

REPORT INFORMATION
  Report Type: 
  Country: None (occurrence: None)
  Receive Date: 20080110
  Receipt Date: 20080110
  Transmission Date: 20080703
  Serious: Yes (Life-Threatening, Hospitalization)
  Sender: FDA-Public Use
  Company Number: None

PATIENT
  Age: 88 Year
  Sex: Male
  Weight: 63.5 kg

DRUGS (1)
  1. ZYVOX [Suspect]
     Indication: ABSCESS LIMB
     Dosage: 600MG BID PO
     Route: 048

REACTIONS (2)
  - ANAEMIA [None]
  - PLATELET COUNT DECREASED [None]
